FAERS Safety Report 5354486-9 (Version None)
Quarter: 2007Q2

REPORT INFORMATION
  Report Type: 
  Country: None (occurrence: None)
  Receive Date: 20070608
  Receipt Date: 20070529
  Transmission Date: 20071010
  Serious: Yes (Hospitalization, Other)
  Sender: FDA-Public Use
  Company Number: S07-GER-01302-01

PATIENT
  Age: 32 Year
  Sex: Female
  Weight: 63 kg

DRUGS (6)
  1. CITALOPRAM HYDROBROMIDE [Suspect]
     Indication: DEPRESSION
     Dosage: 40 MG QD PO
     Route: 048
     Dates: start: 20050913, end: 20051009
  2. MIRTAZAPINE [Suspect]
     Indication: DEPRESSION
     Dosage: 45 MG QD PO
     Route: 048
     Dates: start: 20050601, end: 20050901
  3. ISOTRETINOIN [Suspect]
     Indication: ACNE
     Dosage: 20 MG QD PO
     Route: 048
     Dates: start: 20040701, end: 20050101
  4. ROCEPHIN [Suspect]
     Indication: BORRELIA INFECTION
     Dates: start: 20050501, end: 20050501
  5. VITAMIN B-12             (CYANOCOBALAMINE) [Concomitant]
  6. BELARA [Concomitant]

REACTIONS (3)
  - IDIOPATHIC THROMBOCYTOPENIC PURPURA [None]
  - IMMUNE SYSTEM DISORDER [None]
  - VAGINAL HAEMORRHAGE [None]
